FAERS Safety Report 7148869-4 (Version None)
Quarter: 2010Q4

REPORT INFORMATION
  Report Type: 
  Country: None (occurrence: None)
  Receive Date: 20101209
  Receipt Date: 20101206
  Transmission Date: 20110411
  Serious: Yes (Death, Hospitalization)
  Sender: FDA-Public Use
  Company Number: US-ELI_LILLY_AND_COMPANY-US201008007055

PATIENT
  Sex: Female
  Weight: 54 kg

DRUGS (18)
  1. CETUXIMAB [Suspect]
     Indication: NON-SMALL CELL LUNG CANCER
     Dosage: 380 MG, OTHER
     Route: 042
     Dates: start: 20100722, end: 20100820
  2. GEMCITABINE HYDROCHLORIDE [Suspect]
     Indication: NON-SMALL CELL LUNG CANCER
     Dosage: 1160 MG, OTHER
     Route: 042
     Dates: start: 20100722, end: 20100820
  3. CARBOPLATIN [Suspect]
     Indication: NON-SMALL CELL LUNG CANCER
     Dosage: 585 MG, OTHER
     Route: 042
     Dates: start: 20100722, end: 20100820
  4. M.V.I. [Concomitant]
     Dates: start: 20100823
  5. AMLODIPINE [Concomitant]
     Dosage: 5 MG, UNK
     Dates: start: 20100823
  6. VITAMIN D3 [Concomitant]
     Dates: start: 20100823
  7. OMEPRAZOLE [Concomitant]
     Dosage: 20 MG, UNK
     Dates: start: 20100823
  8. PROCHLORPERAZINE [Concomitant]
     Dosage: 10 MG, UNK
  9. ENOXAPARIN SODIUM [Concomitant]
     Dosage: 80 MG, UNK
     Dates: start: 20100823
  10. DEXAMETHASONE [Concomitant]
     Dosage: 4 MG/KG, UNK
     Route: 048
     Dates: start: 20100812
  11. ALBUTEROL [Concomitant]
     Indication: DYSPNOEA
     Dates: start: 20100823
  12. ATIVAN [Concomitant]
  13. OXYCODONE HCL [Concomitant]
  14. EVISTA [Concomitant]
  15. HYDROCHLOROTHIAZIDE [Concomitant]
     Dosage: 25 MG, UNK
  16. ACETAMINOPHEN [Concomitant]
  17. GABAPENTIN [Concomitant]
  18. COUMADIN [Concomitant]
     Indication: PULMONARY EMBOLISM
     Dosage: 50 MG, 2/D
     Route: 058
     Dates: start: 20100702

REACTIONS (3)
  - ARTERIAL THROMBOSIS [None]
  - DEATH [None]
  - LEG AMPUTATION [None]
